FAERS Safety Report 18303481 (Version 1)
Quarter: 2020Q3

REPORT INFORMATION
  Report Type: Spontaneous
  Country: US (occurrence: CA)
  Receive Date: 20200923
  Receipt Date: 20200923
  Transmission Date: 20201103
  Serious: Yes (Other)
  Sender: FDA-Public Use
  Company Number: US-BAYER-2020-193533

PATIENT
  Age: 34 Year
  Sex: Male
  Weight: 184.97 kg

DRUGS (1)
  1. CIPROFLOXACIN. [Suspect]
     Active Substance: CIPROFLOXACIN
     Indication: PROSTATITIS
     Dosage: 500 MG
     Route: 048

REACTIONS (9)
  - Fatigue [Not Recovered/Not Resolved]
  - Depersonalisation/derealisation disorder [Not Recovered/Not Resolved]
  - Neuropathy peripheral [Not Recovered/Not Resolved]
  - Dysstasia [Not Recovered/Not Resolved]
  - Eye pain [Not Recovered/Not Resolved]
  - Malaise [Not Recovered/Not Resolved]
  - Tendonitis [Not Recovered/Not Resolved]
  - Dry eye [Not Recovered/Not Resolved]
  - Gait disturbance [Not Recovered/Not Resolved]
